FAERS Safety Report 7311698-2 (Version None)
Quarter: 2011Q1

REPORT INFORMATION
  Report Type: 
  Country: None (occurrence: None)
  Receive Date: 20110224
  Receipt Date: 20110217
  Transmission Date: 20110831
  Serious: Yes (Hospitalization)
  Sender: FDA-Public Use
  Company Number: US-B.I. PHARMACEUTICALS,INC./RIDGEFIELD-2011-BP-03778BP

PATIENT
  Sex: Male

DRUGS (10)
  1. VYTORIN [Concomitant]
     Indication: BLOOD CHOLESTEROL INCREASED
  2. HYDROCODONE BITARTRATE [Concomitant]
     Indication: BACK PAIN
  3. FLOMAX [Concomitant]
     Indication: PROSTATIC DISORDER
     Dates: start: 20030101
  4. PRADAXA [Suspect]
     Indication: ATRIAL FIBRILLATION
     Dosage: 300 MG
     Route: 048
     Dates: start: 20110101
  5. LOPRESSOR [Concomitant]
     Indication: ATRIAL FIBRILLATION
  6. GLIPIZIDE [Concomitant]
     Indication: DIABETES MELLITUS
  7. JANUVIA [Concomitant]
     Indication: DIABETES MELLITUS
  8. PROSCAR [Concomitant]
     Indication: PROSTATIC DISORDER
  9. ASA [Concomitant]
     Indication: PROPHYLAXIS
  10. POTASSIUM [Concomitant]
     Indication: PROPHYLAXIS

REACTIONS (2)
  - CARDIAC FAILURE CONGESTIVE [None]
  - DYSPEPSIA [None]
